FAERS Safety Report 10638530 (Version 3)
Quarter: 2014Q4

REPORT INFORMATION
  Report Type: Spontaneous
  Country: JP (occurrence: JP)
  Receive Date: 20141208
  Receipt Date: 20141224
  Transmission Date: 20150529
  Serious: Yes (Hospitalization)
  Sender: FDA-Public Use
  Company Number: JP-ELI_LILLY_AND_COMPANY-JP201411005782

PATIENT
  Age: 75 Year
  Sex: Male

DRUGS (1)
  1. HUMALOG MIX50/50 [Suspect]
     Active Substance: INSULIN LISPRO
     Indication: TYPE 2 DIABETES MELLITUS
     Dosage: 46 UNK, UNK
     Route: 058
     Dates: end: 20131108

REACTIONS (3)
  - Cutaneous amyloidosis [Recovering/Resolving]
  - Injection site erythema [Recovered/Resolved]
  - Hyperosmolar hyperglycaemic state [Unknown]

NARRATIVE: CASE EVENT DATE: 20131108
